FAERS Safety Report 4846343-9 (Version None)
Quarter: 2005Q4

REPORT INFORMATION
  Report Type: 
  Country: None (occurrence: None)
  Receive Date: 20051206
  Receipt Date: 20050802
  Transmission Date: 20060501
  Serious: Yes (Other)
  Sender: FDA-Public Use
  Company Number: DE-SANOFI-SYNTHELABO-A01200505274

PATIENT
  Sex: Female
  Weight: 63 kg

DRUGS (3)
  1. CLOPIDOGREL BISULFATE [Suspect]
     Indication: PERIPHERAL ARTERIAL OCCLUSIVE DISEASE
     Route: 048
     Dates: start: 20050617, end: 20050802
  2. CLOPIDOGREL BISULFATE [Suspect]
     Indication: VASCULAR BYPASS GRAFT
     Route: 048
     Dates: start: 20050617, end: 20050802
  3. CONCOR [Concomitant]
     Indication: HYPERTENSION
     Dosage: 1 TBL DAILY
     Route: 048
     Dates: start: 20020101

REACTIONS (6)
  - CONTUSION [None]
  - DIARRHOEA [None]
  - DIZZINESS [None]
  - MYALGIA [None]
  - NAUSEA [None]
  - RHABDOMYOLYSIS [None]
